FAERS Safety Report 8132377-8 (Version None)
Quarter: 2012Q1

REPORT INFORMATION
  Report Type: 
  Country: None (occurrence: None)
  Receive Date: 20120213
  Receipt Date: 20120201
  Transmission Date: 20120608
  Serious: Yes (Hospitalization)
  Sender: FDA-Public Use
  Company Number: US-ELI_LILLY_AND_COMPANY-US201108003660

PATIENT
  Sex: Female

DRUGS (11)
  1. FORTEO [Suspect]
     Indication: OSTEOPOROSIS
     Dosage: 20 UG, QD
     Dates: start: 20110720
  2. FORTEO [Suspect]
     Dosage: 20 UG, QD
  3. OXYCODONE HCL [Concomitant]
  4. DETROL [Concomitant]
  5. VITAMIN D [Concomitant]
  6. MULTI-VITAMIN [Concomitant]
  7. NORVASC [Concomitant]
  8. FORTEO [Suspect]
     Dosage: 20 UG, QD
  9. FORTEO [Suspect]
     Dosage: 20 UG, QD
  10. GABAPENTIN [Concomitant]
  11. CALCIUM [Concomitant]

REACTIONS (9)
  - NAUSEA [None]
  - INTENTIONAL DRUG MISUSE [None]
  - MUSCULOSKELETAL PAIN [None]
  - DRUG DOSE OMISSION [None]
  - PAIN [None]
  - HIP SURGERY [None]
  - INJECTION SITE ERYTHEMA [None]
  - BONE PAIN [None]
  - BLOOD CALCIUM DECREASED [None]
